FAERS Safety Report 4691967-5 (Version None)
Quarter: 2005Q2

REPORT INFORMATION
  Report Type: 
  Country: None (occurrence: None)
  Receive Date: 20050614
  Receipt Date: 20050602
  Transmission Date: 20051028
  Serious: Yes (Other)
  Sender: FDA-Public Use
  Company Number: 11374

PATIENT

DRUGS (5)
  1. DOXORUBICIN [Suspect]
     Indication: WALDENSTROM'S MACROGLOBULINAEMIA
  2. VINCRISTINE [Suspect]
     Indication: WALDENSTROM'S MACROGLOBULINAEMIA
  3. PREDNISONE TAB [Suspect]
     Indication: WALDENSTROM'S MACROGLOBULINAEMIA
  4. CYCLOPHOSPHAMIDE [Suspect]
     Indication: WALDENSTROM'S MACROGLOBULINAEMIA
  5. RITUXIMAB [Suspect]
     Indication: WALDENSTROM'S MACROGLOBULINAEMIA
     Dosage: 375 MG/M2 IV
     Route: 042

REACTIONS (2)
  - IMMUNE SYSTEM DISORDER [None]
  - THROMBOCYTOPENIA [None]
